FAERS Safety Report 6463740-9 (Version None)
Quarter: 2009Q4

REPORT INFORMATION
  Report Type: 
  Country: None (occurrence: None)
  Receive Date: 20091130
  Receipt Date: 20091130
  Transmission Date: 20100525
  Serious: Yes (Hospitalization)
  Sender: FDA-Public Use
  Company Number: None

PATIENT
  Sex: Male
  Weight: 36 kg

DRUGS (8)
  1. PEG-L- ASPARAGINASE (PEGASPARGASE, ONCOSPAR) 3225 IU [Suspect]
     Dosage: 3255 IU
  2. VINCRISTINE SULFATE [Suspect]
     Dosage: 3.8 MG
  3. CYCLOPHOSPHAMIDE [Suspect]
     Dosage: 2580 MG
  4. CYTARABINE [Suspect]
     Dosage: 1191 MG
  5. MERCAPTOPURINE [Suspect]
     Dosage: 2100 MG
  6. METHOTREXATE [Suspect]
     Dosage: 60 MG
  7. ZOFARN [Concomitant]
  8. BACTRIM [Concomitant]

REACTIONS (6)
  - BLOOD CREATININE INCREASED [None]
  - BODY TEMPERATURE DECREASED [None]
  - DEHYDRATION [None]
  - HYPOTENSION [None]
  - PANCREATITIS [None]
  - UPPER RESPIRATORY TRACT INFECTION [None]
